FAERS Safety Report 9919355 (Version 4)
Quarter: 2014Q2

REPORT INFORMATION
  Report Type: Report from Study
  Country: GB (occurrence: GB)
  Receive Date: 20140224
  Receipt Date: 20140513
  Transmission Date: 20141212
  Serious: Yes (Hospitalization)
  Sender: FDA-Public Use
  Company Number: GB-009507513-1402USA006767

PATIENT
  Age: 51 Year
  Sex: Female

DRUGS (7)
  1. ALENDRONATE SODIUM [Suspect]
     Indication: OSTEOPOROSIS
     Dosage: 70 MG, QW
     Route: 048
     Dates: start: 20080703, end: 20100621
  2. SIMVASTATIN [Concomitant]
     Indication: HYPERTENSION
     Dosage: 40 MG, QD
     Dates: start: 2002
  3. CALCIUM (UNSPECIFIED) [Concomitant]
     Indication: OSTEOPOROSIS
     Dosage: 500 MG, BID
     Dates: start: 20080703
  4. CALCIUM (UNSPECIFIED) [Concomitant]
     Indication: MINERAL SUPPLEMENTATION
  5. VITAMIN D (UNSPECIFIED) [Concomitant]
     Indication: OSTEOPOROSIS
     Dosage: 400 IU, BID
     Dates: start: 20080703
  6. VITAMIN D (UNSPECIFIED) [Concomitant]
     Indication: MINERAL SUPPLEMENTATION
  7. ATACAND [Concomitant]
     Indication: HYPERTENSION
     Dosage: 16 MG, QD
     Dates: start: 2002

REACTIONS (1)
  - Subdural haemorrhage [Not Recovered/Not Resolved]
